FAERS Safety Report 7418805-1 (Version None)
Quarter: 2011Q2

REPORT INFORMATION
  Report Type: 
  Country: None (occurrence: None)
  Receive Date: 20110407
  Receipt Date: 20110325
  Transmission Date: 20111010
  Serious: Yes (Hospitalization, Other)
  Sender: FDA-Public Use
  Company Number: 024025

PATIENT
  Sex: Male
  Weight: 98 kg

DRUGS (18)
  1. DETRALEX [Concomitant]
  2. NEUPRO [Suspect]
     Indication: PARKINSON'S DISEASE
     Dosage: 2 MG, QD, TRANSDERMAL; 4 MG QD, TRANSDERMAL; 8 MG QD, TRANSDERMAL
     Route: 062
     Dates: start: 20101021, end: 20101027
  3. NEUPRO [Suspect]
     Indication: PARKINSON'S DISEASE
     Dosage: 2 MG, QD, TRANSDERMAL; 4 MG QD, TRANSDERMAL; 8 MG QD, TRANSDERMAL
     Route: 062
     Dates: start: 20101028, end: 20101104
  4. NEUPRO [Suspect]
     Indication: PARKINSON'S DISEASE
     Dosage: 2 MG, QD, TRANSDERMAL; 4 MG QD, TRANSDERMAL; 8 MG QD, TRANSDERMAL
     Route: 062
     Dates: start: 20101105, end: 20110106
  5. CILAZAPRIL [Concomitant]
  6. PANTOPRAZOLE [Concomitant]
  7. GODASAL [Concomitant]
  8. RIVOTRIL [Concomitant]
  9. HYDROCHLOROTHIAZIDE [Concomitant]
  10. TULIP [Concomitant]
  11. GANATON [Concomitant]
  12. PANGROL [Concomitant]
  13. ATENOLOL [Concomitant]
  14. VEROSPIRON [Concomitant]
  15. EGILOK [Concomitant]
  16. SULPIRIDE [Concomitant]
  17. LISKANTIN [Concomitant]
  18. BETALOC [Concomitant]

REACTIONS (4)
  - CHOLANGITIS [None]
  - CHOLELITHIASIS [None]
  - PANCREATITIS NECROTISING [None]
  - PANCREATIC PSEUDOCYST [None]
